FAERS Safety Report 14350240 (Version 5)
Quarter: 2019Q1

REPORT INFORMATION
  Report Type: Spontaneous
  Country: US (occurrence: US)
  Receive Date: 20180104
  Receipt Date: 20190326
  Transmission Date: 20190417
  Serious: No
  Sender: FDA-Public Use
  Company Number: US-PFIZER INC-2018003394

PATIENT
  Age: 69 Year
  Sex: Female
  Weight: 82 kg

DRUGS (10)
  1. XELJANZ [Suspect]
     Active Substance: TOFACITINIB CITRATE
     Indication: COLLAGEN-VASCULAR DISEASE
     Dosage: 5 MG TABLET BY MOUTH TWICE A DAY
     Route: 048
  2. HICET [Concomitant]
     Indication: PAIN
  3. CELEBREX [Concomitant]
     Active Substance: CELECOXIB
     Dosage: UNK
  4. NORCO [Concomitant]
     Active Substance: ACETAMINOPHEN\HYDROCODONE BITARTRATE
     Indication: PAIN
     Dosage: UNK (10 TABLET BY MOUTH 1/2 EVERY 3 HOURS)
     Route: 048
     Dates: start: 2017
  5. NORCO [Concomitant]
     Active Substance: ACETAMINOPHEN\HYDROCODONE BITARTRATE
     Dosage: 30 MG, DAILY
  6. HICET [Concomitant]
     Indication: HEADACHE
     Dosage: 15 MG, DAILY
     Route: 048
     Dates: start: 200610
  7. CODEINE [Concomitant]
     Active Substance: CODEINE
     Dosage: UNK
  8. LEFLUNOMIDE. [Concomitant]
     Active Substance: LEFLUNOMIDE
     Dosage: UNK
  9. XELJANZ [Suspect]
     Active Substance: TOFACITINIB CITRATE
     Indication: FIBROMYALGIA
     Dosage: 10 MG, 2X/DAY
     Dates: start: 201712
  10. SULFASALAZINE. [Concomitant]
     Active Substance: SULFASALAZINE
     Dosage: UNK

REACTIONS (4)
  - Product use in unapproved indication [Unknown]
  - Aphonia [Unknown]
  - Diarrhoea [Not Recovered/Not Resolved]
  - Gastrointestinal pain [Unknown]

NARRATIVE: CASE EVENT DATE: 2017
